FAERS Safety Report 4779184-1 (Version None)
Quarter: 2005Q3

REPORT INFORMATION
  Report Type: 
  Country: None (occurrence: None)
  Receive Date: 20050923
  Receipt Date: 20050912
  Transmission Date: 20060218
  Serious: Yes (Other)
  Sender: FDA-Public Use
  Company Number: S05-USA-04310-01

PATIENT
  Age: 65 Year
  Sex: Female

DRUGS (5)
  1. NAMENDA [Suspect]
     Indication: DEMENTIA ALZHEIMER'S TYPE
     Dosage: 10 MG BID; PO
     Route: 048
     Dates: start: 20041101
  2. ARICEPT [Concomitant]
  3. GLUCOVANCE [Concomitant]
  4. DIGITALIS [Concomitant]
  5. FOCUS FACTOR (HERBAL SUPPLEMENT) [Concomitant]

REACTIONS (2)
  - CONFUSIONAL STATE [None]
  - NORMAL PRESSURE HYDROCEPHALUS [None]
